FAERS Safety Report 25818239 (Version 1)
Quarter: 2025Q3

REPORT INFORMATION
  Report Type: Spontaneous
  Country: EU (occurrence: EU)
  Receive Date: 20250918
  Receipt Date: 20250918
  Transmission Date: 20251020
  Serious: Yes (Other)
  Sender: TEVA
  Company Number: EU-TEVA-VS-3371786

PATIENT
  Age: 73 Year
  Sex: Female

DRUGS (3)
  1. OXAZEPAM [Suspect]
     Active Substance: OXAZEPAM
     Indication: Burnout syndrome
     Route: 065
     Dates: start: 2001
  2. OXAZEPAM [Suspect]
     Active Substance: OXAZEPAM
     Indication: Burnout syndrome
     Route: 065
     Dates: start: 2001
  3. ALPRAZOLAM [Suspect]
     Active Substance: ALPRAZOLAM
     Indication: Product used for unknown indication
     Route: 065

REACTIONS (7)
  - Cardiac flutter [Unknown]
  - Hyperhidrosis [Unknown]
  - Withdrawal syndrome [Unknown]
  - Migraine [Unknown]
  - Rheumatic disorder [Not Recovered/Not Resolved]
  - Drug dependence [Not Recovered/Not Resolved]
  - Paranoia [Recovered/Resolved]
